FAERS Safety Report 4636106-1 (Version None)
Quarter: 2005Q2

REPORT INFORMATION
  Report Type: 
  Country: None (occurrence: None)
  Receive Date: 20050414
  Receipt Date: 20050414
  Transmission Date: 20051028
  Serious: No
  Sender: FDA-Public Use
  Company Number: None

PATIENT
  Sex: Female
  Weight: 69.1 kg

DRUGS (3)
  1. MITOMYCIN-C BULK POWDER [Suspect]
     Dosage: 10 MG/M2 IV BOLUS ON DAYS 1 AND 29
     Route: 040
     Dates: start: 20050322
  2. FLUOROURACIL [Suspect]
     Dosage: 1000 MG/M2 IV BY CONTINUOUS INFUSION ON DAYS 1-4 AND 29-32
     Route: 042
  3. RADIOTHERAPY [Suspect]

REACTIONS (7)
  - DEHYDRATION [None]
  - DIARRHOEA [None]
  - FREQUENT BOWEL MOVEMENTS [None]
  - NAUSEA [None]
  - NEUTROPHIL COUNT DECREASED [None]
  - PLATELET COUNT DECREASED [None]
  - WHITE BLOOD CELL COUNT DECREASED [None]
